FAERS Safety Report 8355896 (Version 4)
Quarter: 2013Q2

REPORT INFORMATION
  Report Type: Spontaneous
  Country: US (occurrence: US)
  Receive Date: 20120126
  Receipt Date: 20130401
  Transmission Date: 20140414
  Serious: Yes (Other)
  Sender: FDA-Public Use
  Company Number: US-ELI_LILLY_AND_COMPANY-US201201004658

PATIENT
  Age: 78 Year
  Sex: Female
  Weight: 47.62 kg

DRUGS (5)
  1. FORTEO [Suspect]
     Indication: OSTEOPOROSIS
     Dosage: 20 UG, QD
     Route: 065
     Dates: start: 201106, end: 20121203
  2. FORTEO [Suspect]
     Dosage: 20 UG, QD
     Route: 065
     Dates: start: 201106, end: 20121203
  3. FORTEO [Suspect]
     Dosage: 20 UG, QD
     Route: 065
     Dates: start: 201106, end: 20121203
  4. CALCIUM [Concomitant]
     Dosage: 1200 MG, QD
     Route: 065
  5. EVISTA [Concomitant]
     Indication: PROPHYLAXIS
     Dosage: 60 MG, QD
     Route: 065
     Dates: start: 2010

REACTIONS (12)
  - Hydronephrosis [Recovered/Resolved]
  - Renal disorder [Unknown]
  - Heart rate increased [Unknown]
  - Fatigue [Unknown]
  - Bone disorder [Unknown]
  - Pain [Unknown]
  - Renal pain [Unknown]
  - Vomiting [Unknown]
  - Nausea [Unknown]
  - Joint swelling [Unknown]
  - Oedema peripheral [Unknown]
  - Vomiting [Unknown]
